FAERS Safety Report 8492066-7 (Version None)
Quarter: 2012Q3

REPORT INFORMATION
  Report Type: 
  Country: None (occurrence: None)
  Receive Date: 20120706
  Receipt Date: 20120703
  Transmission Date: 20120928
  Serious: Yes (Other)
  Sender: FDA-Public Use
  Company Number: SK-PFIZER INC-2012127897

PATIENT
  Sex: Female

DRUGS (7)
  1. VERAPAMIL [Concomitant]
  2. SUNITINIB MALATE [Suspect]
     Dosage: UNK
     Dates: start: 20100622, end: 20120517
  3. MAGNESIUM [Concomitant]
  4. HYDROCHLOROTHIAZIDE [Concomitant]
  5. FAKTU [Concomitant]
  6. PREDNISONE [Concomitant]
     Dosage: 20 MG, UNK
  7. GOPTEN ^ABBOTT^ [Concomitant]
     Dosage: 2 MG, 1X/DAY
     Dates: start: 20110707

REACTIONS (1)
  - PULMONARY TOXICITY [None]
